FAERS Safety Report 4556594-9 (Version None)
Quarter: 2005Q1

REPORT INFORMATION
  Report Type: 
  Country: None (occurrence: None)
  Receive Date: 20050114
  Receipt Date: 20050113
  Transmission Date: 20050727
  Serious: Yes (Hospitalization, Other)
  Sender: FDA-Public Use
  Company Number: HQWYE429407JAN05

PATIENT
  Age: 73 Year
  Sex: Male

DRUGS (13)
  1. CORDARONE [Suspect]
     Indication: ATRIAL FIBRILLATION
     Dosage: 200 MG 3X PER 1 DAY
     Route: 048
     Dates: start: 20040909, end: 20040913
  2. NORVASC [Concomitant]
  3. LIPITOR [Concomitant]
  4. HEMINEVRIN (CLOMETHIAZOLE EDISILATE) [Concomitant]
  5. HALDOL [Concomitant]
  6. VENTOLIN [Concomitant]
  7. PARACET (PARACETAMOL) [Concomitant]
  8. MUCOMYST [Concomitant]
  9. ATROVENT [Concomitant]
  10. CLAFORAN [Concomitant]
  11. ALBYL-E (ACETYLSALICYLIC ACID/MAGNESIUM OXIDE) [Concomitant]
  12. LEVAXIN (LEVOTHYROXINE SODIUM) [Concomitant]
  13. SELO-ZOK (METOPROLOL SUCCINATE) [Concomitant]

REACTIONS (8)
  - BLOOD CREATININE INCREASED [None]
  - CEREBRAL INFARCTION [None]
  - EOSINOPHIL COUNT INCREASED [None]
  - ESCHERICHIA URINARY TRACT INFECTION [None]
  - HAEMOGLOBIN DECREASED [None]
  - PLEURAL EFFUSION [None]
  - PROTEIN TOTAL DECREASED [None]
  - RED BLOOD CELL SEDIMENTATION RATE INCREASED [None]
